FAERS Safety Report 6955868-1 (Version None)
Quarter: 2010Q3

REPORT INFORMATION
  Report Type: 
  Country: None (occurrence: None)
  Receive Date: 20100830
  Receipt Date: 20100818
  Transmission Date: 20110219
  Serious: Yes (Life-Threatening, Hospitalization)
  Sender: FDA-Public Use
  Company Number: GB-ROCHE-722076

PATIENT
  Age: 52 Year
  Sex: Female

DRUGS (6)
  1. CAPECITABINE [Suspect]
     Dosage: DRUG WITHDRAWN; INDICATION: RECTAL ADENOCARCINOMA AND RADIOTHERAPY.
     Route: 048
     Dates: start: 20100721, end: 20100803
  2. ADCAL D3 [Concomitant]
  3. ALENDRONATE SODIUM [Concomitant]
  4. FOLIC ACID [Concomitant]
  5. METOCLOPRAMIDE [Concomitant]
  6. ACETAMINOPHEN [Concomitant]

REACTIONS (4)
  - DIARRHOEA [None]
  - HEPATIC ENZYME INCREASED [None]
  - HEPATITIS [None]
  - JAUNDICE [None]
